FAERS Safety Report 9277608 (Version 1)
Quarter: 2013Q2

REPORT INFORMATION
  Report Type: Spontaneous
  Country: US (occurrence: US)
  Receive Date: 20130508
  Receipt Date: 20130508
  Transmission Date: 20140414
  Serious: No
  Sender: FDA-Public Use
  Company Number: US-VERTEX PHARMACEUTICALS INC-2013-005790

PATIENT
  Age: 24 Year
  Sex: Female

DRUGS (2)
  1. KALYDECO [Suspect]
     Indication: CYSTIC FIBROSIS
     Dosage: 150 MG, BID
     Route: 048
     Dates: start: 20130315
  2. KALYDECO [Suspect]
     Dosage: 150 MG, QD
     Route: 048

REACTIONS (4)
  - Sinusitis [Recovered/Resolved]
  - Wheezing [Recovered/Resolved]
  - Abdominal pain [Recovered/Resolved]
  - Liver function test abnormal [Recovered/Resolved]
